FAERS Safety Report 10166117 (Version 2)
Quarter: 2014Q2

REPORT INFORMATION
  Report Type: Spontaneous
  Country: US (occurrence: US)
  Receive Date: 20140512
  Receipt Date: 20140606
  Transmission Date: 20141212
  Serious: Yes (Death)
  Sender: FDA-Public Use
  Company Number: US-ROCHE-1397627

PATIENT
  Sex: Male

DRUGS (1)
  1. LUCENTIS [Suspect]
     Indication: SWELLING
     Dosage: RIGHT EYE, LAST DOSE 2012
     Route: 065

REACTIONS (1)
  - Pancreatic carcinoma [Fatal]
